FAERS Safety Report 9837895 (Version 1)
Quarter: 2013Q4

REPORT INFORMATION
  Report Type: Spontaneous
  Country: US (occurrence: None)
  Receive Date: 20131205
  Receipt Date: 20131205
  Transmission Date: 20140711
  Serious: Yes (Other)
  Sender: FDA-Public Use
  Company Number: 163-POMAL-13104156

PATIENT
  Age: 80 Year
  Sex: Female
  Weight: 59 kg

DRUGS (1)
  1. POMALYST [Suspect]
     Indication: PLASMA CELL MYELOMA
     Dosage: 2 MG, 1 IN 1 D, PO
     Route: 048
     Dates: start: 20130905

REACTIONS (7)
  - Dysuria [None]
  - Night sweats [None]
  - Chills [None]
  - Hyperhidrosis [None]
  - Fatigue [None]
  - Constipation [None]
  - Hypoaesthesia [None]
